FAERS Safety Report 12848998 (Version 1)
Quarter: 2016Q4

REPORT INFORMATION
  Report Type: Spontaneous
  Country: US (occurrence: US)
  Receive Date: 20161014
  Receipt Date: 20161014
  Transmission Date: 20170207
  Serious: No
  Sender: FDA-Public Use
  Company Number: US-ASTRAZENECA-2016SE99995

PATIENT
  Age: 56 Year
  Sex: Female
  Weight: 115.7 kg

DRUGS (13)
  1. BYDUREON [Suspect]
     Active Substance: EXENATIDE
     Indication: BLOOD GLUCOSE INCREASED
     Route: 058
     Dates: start: 2013, end: 2014
  2. OMEPRAZOLE. [Suspect]
     Active Substance: OMEPRAZOLE
     Indication: GASTROOESOPHAGEAL REFLUX DISEASE
     Route: 048
  3. ARIPIPRAZOLE. [Concomitant]
     Active Substance: ARIPIPRAZOLE
     Indication: AFFECTIVE DISORDER
     Route: 048
  4. VIT B 12 [Concomitant]
     Dosage: 1000 AT NIGHT
     Route: 048
  5. MAGNESIUM [Concomitant]
     Active Substance: MAGNESIUM
     Route: 048
  6. SIMVASTATIN. [Concomitant]
     Active Substance: SIMVASTATIN
     Indication: BLOOD CHOLESTEROL
  7. CITRICAL WITH VIT D [Concomitant]
     Dosage: EVERY 12 HOURS
     Route: 048
  8. VENLAFAXINE HCL [Concomitant]
     Active Substance: VENLAFAXINE HYDROCHLORIDE
     Route: 048
  9. BUPOPRION HCL [Concomitant]
     Indication: AFFECTIVE DISORDER
     Route: 048
  10. CARBIDOPA- LEVODOPA [Concomitant]
     Indication: RESTLESS LEGS SYNDROME
     Dosage: EVERY 12 HOURS
     Route: 048
  11. ASPIRIN. [Concomitant]
     Active Substance: ASPIRIN
     Route: 048
  12. OLANZAPINE. [Concomitant]
     Active Substance: OLANZAPINE
     Route: 048
  13. VOLTARAN GEL 1 PERCENT [Concomitant]
     Indication: ARTHRITIS
     Route: 061

REACTIONS (11)
  - Blood magnesium decreased [Unknown]
  - Blood glucose increased [Unknown]
  - Arthritis [Unknown]
  - Blood potassium decreased [Unknown]
  - Weight increased [Unknown]
  - Device malfunction [Unknown]
  - Device use issue [Unknown]
  - Weight decreased [Unknown]
  - Diabetes mellitus inadequate control [Unknown]
  - Glycosylated haemoglobin increased [Unknown]
  - Restless legs syndrome [Unknown]

NARRATIVE: CASE EVENT DATE: 2014
